FAERS Safety Report 5842140-6 (Version None)
Quarter: 2008Q3

REPORT INFORMATION
  Report Type: 
  Country: None (occurrence: None)
  Receive Date: 20080812
  Receipt Date: 20080801
  Transmission Date: 20090109
  Serious: Yes (Other)
  Sender: FDA-Public Use
  Company Number: US-JNJFOC-20080800961

PATIENT
  Age: 40 Year
  Sex: Male
  Weight: 186.88 kg

DRUGS (3)
  1. EXTRA STRENGTH TYLENOL [Suspect]
     Route: 048
  2. EXTRA STRENGTH TYLENOL [Suspect]
     Indication: BACK PAIN
     Dosage: UP TO 28,000-29,000 MG DAILY
     Route: 048
  3. ACETAMINOPHEN [Suspect]
     Indication: BACK PAIN
     Dosage: UP TO 28,000-29,000 MG DAILY
     Route: 048

REACTIONS (3)
  - CHROMATURIA [None]
  - HYPERTHYROIDISM [None]
  - INTENTIONAL OVERDOSE [None]
